FAERS Safety Report 4855112-5 (Version None)
Quarter: 2005Q4

REPORT INFORMATION
  Report Type: 
  Country: None (occurrence: None)
  Receive Date: 20051125
  Receipt Date: 20050316
  Transmission Date: 20060501
  Serious: Yes (Hospitalization)
  Sender: FDA-Public Use
  Company Number: US-JNJFOC-20041205319

PATIENT
  Age: 83 Year
  Sex: Female
  Weight: 58.514 kg

DRUGS (13)
  1. LEVAQUIN [Suspect]
     Indication: CYSTITIS
     Dosage: 250 MG, 1 IN 2 DAY, ORAL
     Route: 048
     Dates: start: 20041101, end: 20041101
  2. ACTONEL [Concomitant]
  3. PRILOSEC [Concomitant]
  4. CENTRUM SILVER (CENTRUM SILVER) [Concomitant]
  5. TENOROMIN (ATENOLOL) [Concomitant]
  6. PLENDIL [Concomitant]
  7. K-DUR 10 [Concomitant]
  8. CITRACAL (CALCIUM CITRATE) [Concomitant]
  9. DIURETIC (DIURETICS) [Concomitant]
  10. NEURONTIN [Concomitant]
  11. ACETAMINOPHEN [Concomitant]
  12. PRAVACHOL [Concomitant]
  13. DIAVAN (VALSARTAN) [Concomitant]

REACTIONS (1)
  - ATRIAL FIBRILLATION [None]
